FAERS Safety Report 4493998-7 (Version None)
Quarter: 2004Q4

REPORT INFORMATION
  Report Type: 
  Country: None (occurrence: None)
  Receive Date: 20041105
  Receipt Date: 20041026
  Transmission Date: 20050328
  Serious: Yes (Hospitalization)
  Sender: FDA-Public Use
  Company Number: US-JNJFOC-20040703367

PATIENT
  Sex: Female

DRUGS (5)
  1. DURAGESIC [Suspect]
     Route: 062
     Dates: start: 20040707, end: 20040710
  2. TOPROL-XL [Concomitant]
  3. DIOVAN [Concomitant]
  4. DIOVAN [Concomitant]
     Indication: HYPERTENSION
  5. MIACALCIN [Concomitant]
     Route: 045

REACTIONS (7)
  - DYSPNOEA [None]
  - FLUSHING [None]
  - HYPONATRAEMIA [None]
  - HYPOTENSION [None]
  - NAUSEA [None]
  - RASH GENERALISED [None]
  - VOMITING [None]
